FAERS Safety Report 7656765-9 (Version None)
Quarter: 2011Q3

REPORT INFORMATION
  Report Type: 
  Country: None (occurrence: None)
  Receive Date: 20110802
  Receipt Date: 20110719
  Transmission Date: 20111222
  Serious: Yes (Other)
  Sender: FDA-Public Use
  Company Number: FK201101445

PATIENT
  Age: 41 Year
  Sex: Female

DRUGS (4)
  1. CYTARABINE [Suspect]
     Indication: ACUTE LYMPHOCYTIC LEUKAEMIA
     Dosage: 50 MG, INTRATHECAL
     Route: 037
  2. DEXAMETHASONE [Suspect]
     Indication: ACUTE LYMPHOCYTIC LEUKAEMIA
     Dosage: 5 MG, INTRATHECAL
     Route: 037
  3. METHOTREXATE [Suspect]
     Indication: ACUTE LYMPHOCYTIC LEUKAEMIA
     Dosage: 15 MG, INTRATHECAL
     Route: 037
  4. LIDOCAINE [Concomitant]

REACTIONS (6)
  - MYELOPATHY [None]
  - PARAESTHESIA [None]
  - PARAPLEGIA [None]
  - AGITATION [None]
  - PRURITUS [None]
  - SENSORIMOTOR DISORDER [None]
